FAERS Safety Report 11952513 (Version 2)
Quarter: 2016Q1

REPORT INFORMATION
  Report Type: Report from Study
  Country: US (occurrence: US)
  Receive Date: 20160125
  Receipt Date: 20160209
  Transmission Date: 20160526
  Serious: No
  Sender: FDA-Public Use
  Company Number: US-TARO-2016TAR00061

PATIENT
  Sex: Female
  Weight: 99.77 kg

DRUGS (4)
  1. EPIDUO [Suspect]
     Active Substance: ADAPALENE\BENZOYL PEROXIDE
     Indication: ACNE
     Dosage: PEA-SIZED AMOUNT, 1X/DAY
     Route: 061
     Dates: start: 20151027
  2. ADAPALENE AND BENZOYL PEROXIDE [Suspect]
     Active Substance: ADAPALENE\BENZOYL PEROXIDE
     Indication: ACNE
     Dosage: PEA-SIZED AMOUNT, 1X/DAY
     Route: 061
     Dates: start: 20151027
  3. UNSPECIFIED BIRTH CONTROL [Concomitant]
     Active Substance: UNSPECIFIED INGREDIENT
     Dosage: UNK
     Dates: start: 20150522
  4. BLINDED PLACEBO [Suspect]
     Active Substance: INVESTIGATIONAL PRODUCT
     Indication: ACNE
     Dosage: PEA-SIZED AMOUNT, 1X/DAY
     Route: 061
     Dates: start: 20151027

REACTIONS (1)
  - No adverse event [Unknown]
